FAERS Safety Report 17430242 (Version 1)
Quarter: 2020Q1

REPORT INFORMATION
  Report Type: Spontaneous
  Country: US (occurrence: US)
  Receive Date: 20200215
  Receipt Date: 20200215
  Transmission Date: 20200409
  Serious: Yes (Hospitalization)
  Sender: FDA-Public Use
  Company Number: None

PATIENT
  Age: 52 Year
  Sex: Female
  Weight: 108.9 kg

DRUGS (8)
  1. TRAMADOL HCL 50 MG TABS, CIV [Suspect]
     Active Substance: TRAMADOL HYDROCHLORIDE
     Indication: CARPAL TUNNEL DECOMPRESSION
     Dosage: ?          QUANTITY:20 TABLET(S);?
     Route: 048
     Dates: start: 20200114, end: 20200203
  2. SERTRALINE [Concomitant]
     Active Substance: SERTRALINE HYDROCHLORIDE
  3. WOMEN^S MULTIVITAMIN W/IRON [Concomitant]
  4. PROBIOTICS [Concomitant]
     Active Substance: PROBIOTICS NOS
  5. UNISOM SLEEP AID [Concomitant]
  6. PREDNISONE. [Concomitant]
     Active Substance: PREDNISONE
  7. ACTEMRA [Concomitant]
     Active Substance: TOCILIZUMAB
  8. VITAMIN D3 [Concomitant]
     Active Substance: CHOLECALCIFEROL

REACTIONS (8)
  - Suicidal ideation [None]
  - Neuropathy peripheral [None]
  - Drug withdrawal syndrome [None]
  - Osteoarthritis [None]
  - Condition aggravated [None]
  - Stitch abscess [None]
  - Depression [None]
  - Pain [None]

NARRATIVE: CASE EVENT DATE: 20200204
